FAERS Safety Report 21769348 (Version 4)
Quarter: 2023Q1

REPORT INFORMATION
  Report Type: Report from Study
  Country: CA (occurrence: CA)
  Receive Date: 20221223
  Receipt Date: 20230222
  Transmission Date: 20230417
  Serious: Yes (Other)
  Sender: FDA-Public Use
  Company Number: CA-CELLTRION INC.-2022CA021400

PATIENT

DRUGS (1)
  1. TRUXIMA [Suspect]
     Active Substance: RITUXIMAB-ABBS
     Indication: Glomerulonephritis rapidly progressive
     Dosage: 500 MG, Q 6 MONTHS (INFUSION#2)
     Route: 042
     Dates: start: 20220607

REACTIONS (7)
  - SARS-CoV-2 test positive [Unknown]
  - Surgery [Unknown]
  - Poor venous access [Unknown]
  - Hernia [Unknown]
  - Dental implantation [Unknown]
  - Intentional dose omission [Unknown]
  - Off label use [Unknown]

NARRATIVE: CASE EVENT DATE: 20221215
